FAERS Safety Report 6220048-4 (Version None)
Quarter: 2009Q2

REPORT INFORMATION
  Report Type: 
  Country: None (occurrence: None)
  Receive Date: 20090609
  Receipt Date: 20090528
  Transmission Date: 20091009
  Serious: Yes (Hospitalization)
  Sender: FDA-Public Use
  Company Number: PHHY2009ES20663

PATIENT
  Age: 78 Year
  Sex: Female

DRUGS (5)
  1. SINTROM UNO [Suspect]
     Indication: ATRIAL FIBRILLATION
     Dosage: UNK
     Route: 048
     Dates: end: 20090122
  2. DIOVAN [Suspect]
     Indication: HYPERTENSION
     Dosage: 80 MG, QD
     Route: 048
     Dates: start: 20080530
  3. OMEPRAZOLE [Suspect]
     Dosage: 20 MG, QD
     Route: 048
     Dates: start: 20080101
  4. TORSEMIDE [Concomitant]
     Indication: HYPERTENSION
     Dosage: 5 MG, QD
     Route: 048
     Dates: start: 20080617
  5. CYMBALTA [Concomitant]
     Indication: DEPRESSION
     Route: 048

REACTIONS (3)
  - FAECES DISCOLOURED [None]
  - LOWER GASTROINTESTINAL HAEMORRHAGE [None]
  - MALAISE [None]
